FAERS Safety Report 14063883 (Version 2)
Quarter: 2018Q1

REPORT INFORMATION
  Report Type: Spontaneous
  Country: AU (occurrence: AU)
  Receive Date: 20171009
  Receipt Date: 20180306
  Transmission Date: 20180508
  Serious: Yes (Death, Other)
  Sender: FDA-Public Use
  Company Number: PHHY2017AU147640

PATIENT
  Age: 42 Year
  Sex: Female

DRUGS (20)
  1. IDARUBICIN [Suspect]
     Active Substance: IDARUBICIN
     Dosage: 9 MG/M2, QD (DAY 1 TO 3)
     Route: 042
     Dates: start: 20110420
  2. CYTARABINE. [Suspect]
     Active Substance: CYTARABINE
     Dosage: 2000 MG/M2, QD (DAY 1 TO 5)
     Route: 042
     Dates: start: 20120727
  3. CYTARABINE. [Suspect]
     Active Substance: CYTARABINE
     Dosage: 3000 MG/M2, BID  (DAY 1 TO 7)
     Route: 042
     Dates: start: 20110420
  4. CYTARABINE. [Suspect]
     Active Substance: CYTARABINE
     Dosage: 2000 MG/M2, QD (DAY 1 TO 5)
     Route: 042
     Dates: start: 20111117
  5. POSACONAZOLE [Suspect]
     Active Substance: POSACONAZOLE
     Indication: PRODUCT USED FOR UNKNOWN INDICATION
     Dosage: 200 MG, TID
     Route: 065
     Dates: start: 20110319
  6. ETOPOSIDE. [Suspect]
     Active Substance: ETOPOSIDE
     Dosage: 75 MG/M2, QD (DAY 1 TO 7)
     Route: 042
     Dates: start: 20170518
  7. IDARUBICIN [Suspect]
     Active Substance: IDARUBICIN
     Indication: ACUTE MYELOID LEUKAEMIA
     Dosage: 12 MG/M2, QD (DAY 1 TO 3)
     Route: 042
     Dates: start: 20110319
  8. POSACONAZOLE [Suspect]
     Active Substance: POSACONAZOLE
     Dosage: 200 MG, TID
     Route: 065
     Dates: start: 20110518
  9. AMSACRINE [Suspect]
     Active Substance: AMSACRINE
     Indication: ACUTE MYELOID LEUKAEMIA
     Dosage: 100 MG/M2, QD (DAY 1 TO 3)
     Route: 042
     Dates: start: 20111117
  10. FLUDARABINE [Suspect]
     Active Substance: FLUDARABINE PHOSPHATE
     Dosage: 30 MG/M2, QD (DAY 1 TO 5)
     Route: 042
     Dates: start: 20120727
  11. CYTARABINE. [Suspect]
     Active Substance: CYTARABINE
     Dosage: 3000 MG/M2, BID  (DAY 1 TO 7)
     Route: 042
     Dates: start: 20110518
  12. POSACONAZOLE [Suspect]
     Active Substance: POSACONAZOLE
     Dosage: 200 MG, TID
     Route: 065
     Dates: start: 20111117
  13. AMSACRINE [Suspect]
     Active Substance: AMSACRINE
     Dosage: 100 MG/M2, QD (DAY 1 TO 3)
     Route: 042
     Dates: start: 20120727
  14. IDARUBICIN [Suspect]
     Active Substance: IDARUBICIN
     Dosage: 9 MG/M2, QD (DAY 1 TO 3)
     Route: 042
     Dates: start: 20110518
  15. FLUDARABINE [Suspect]
     Active Substance: FLUDARABINE PHOSPHATE
     Indication: ACUTE MYELOID LEUKAEMIA
     Dosage: 30 MG/M2, QD (DAY 1 TO 5)
     Route: 042
     Dates: start: 20111117
  16. ETOPOSIDE. [Suspect]
     Active Substance: ETOPOSIDE
     Indication: ACUTE MYELOID LEUKAEMIA
     Dosage: 75 MG/M2, QD (DAY 1 TO 7)
     Route: 042
     Dates: start: 20110420
  17. GRANULOCYTE COLONY STIMULATING FACTOR [Suspect]
     Active Substance: GRANULOCYTE COLONY-STIMULATING FACTOR NOS
     Dosage: 300 UG, QD ( DAY 0 TO 6)
     Route: 058
     Dates: start: 20120727
  18. CYTARABINE. [Suspect]
     Active Substance: CYTARABINE
     Indication: ACUTE MYELOID LEUKAEMIA
     Dosage: 3000 MG/M2, BID (DAY 1 TO 7)
     Route: 042
     Dates: start: 20110319
  19. POSACONAZOLE [Suspect]
     Active Substance: POSACONAZOLE
     Dosage: 200 MG, TID
     Route: 065
     Dates: start: 20110420
  20. GRANULOCYTE COLONY STIMULATING FACTOR [Suspect]
     Active Substance: GRANULOCYTE COLONY-STIMULATING FACTOR NOS
     Indication: ACUTE MYELOID LEUKAEMIA
     Dosage: 300 UG, QD ( DAY 0 TO 6)
     Route: 058
     Dates: start: 20111117

REACTIONS (3)
  - Death [Fatal]
  - Acute myeloid leukaemia recurrent [Not Recovered/Not Resolved]
  - Drug effect incomplete [Unknown]

NARRATIVE: CASE EVENT DATE: 20120711
